FAERS Safety Report 9312304 (Version 2)
Quarter: 2013Q3

REPORT INFORMATION
  Report Type: Spontaneous
  Country: US (occurrence: US)
  Receive Date: 20130528
  Receipt Date: 20130911
  Transmission Date: 20140515
  Serious: Yes (Other)
  Sender: FDA-Public Use
  Company Number: US-ABBOTT-13P-163-1094335-00

PATIENT
  Age: 74 Year
  Sex: Male
  Weight: 112.14 kg

DRUGS (5)
  1. ANDROGEL 1% [Suspect]
     Indication: BLOOD TESTOSTERONE DECREASED
     Dosage: 2 PUMPS DAILY
     Dates: start: 2007, end: 201211
  2. ANDROGEL 1% [Suspect]
     Dosage: 5 GR PACKET DAILY
     Dates: start: 20130520
  3. ANDROGEL 1.62% [Suspect]
     Indication: BLOOD TESTOSTERONE DECREASED
     Dosage: 2 PUMPS DAILY
     Dates: start: 201211
  4. COMBIGAN [Concomitant]
     Indication: GLAUCOMA
  5. LISINOPRIL [Concomitant]
     Indication: HYPERTENSION

REACTIONS (6)
  - Cataract [Recovered/Resolved]
  - Joint stiffness [Not Recovered/Not Resolved]
  - Musculoskeletal stiffness [Not Recovered/Not Resolved]
  - Local swelling [Recovering/Resolving]
  - Skin ulcer [Recovering/Resolving]
  - Blister [Recovered/Resolved]
